FAERS Safety Report 14355425 (Version 4)
Quarter: 2018Q1

REPORT INFORMATION
  Report Type: Spontaneous
  Country: RO (occurrence: RO)
  Receive Date: 20180105
  Receipt Date: 20180329
  Transmission Date: 20180509
  Serious: Yes (Other)
  Sender: FDA-Public Use
  Company Number: RO-AUROBINDO-AUR-APL-2018-000336

PATIENT
  Age: 61 Year
  Sex: Male

DRUGS (16)
  1. LAGOSA [Concomitant]
     Dosage: ()
  2. LAGOSA [Concomitant]
     Route: 065
  3. PROPRANOLOL [Concomitant]
     Active Substance: PROPRANOLOL HYDROCHLORIDE
     Indication: PRODUCT USED FOR UNKNOWN INDICATION
     Dosage: ()
     Route: 065
  4. DIUREX                             /00022001/ [Concomitant]
     Dosage: ()
  5. LAGOSA [Concomitant]
     Dosage: ()
  6. LAGOSA [Concomitant]
     Dosage: ()
  7. LAGOSA [Concomitant]
     Dosage: ()
  8. PROPRANOLOL [Concomitant]
     Active Substance: PROPRANOLOL HYDROCHLORIDE
     Indication: PRODUCT USED FOR UNKNOWN INDICATION
     Dosage: UNK
     Route: 065
  9. DIUREX                             /00022001/ [Concomitant]
     Indication: OEDEMA
     Dosage: UNK
     Route: 065
  10. DIUREX                             /00022001/ [Concomitant]
     Dosage: ()
  11. DIUREX                             /00022001/ [Concomitant]
     Dosage: ()
  12. LAGOSA [Concomitant]
     Dosage: ()
  13. DIUREX                             /00022001/ [Concomitant]
     Dosage: ()
  14. RIBAVIRIN FILM COATED TABLETS [Suspect]
     Active Substance: RIBAVIRIN
     Indication: HEPATIC CIRRHOSIS
     Dosage: UNK
     Route: 048
     Dates: start: 20170913, end: 20171122
  15. HARVONI [Suspect]
     Active Substance: LEDIPASVIR\SOFOSBUVIR
     Indication: HEPATIC CIRRHOSIS
     Dosage: UNK ()
     Route: 048
     Dates: start: 20170913, end: 201712
  16. LAGOSA [Concomitant]
     Indication: HEPATIC CIRRHOSIS
     Dosage: UNK
     Route: 065

REACTIONS (6)
  - Oedema peripheral [Recovered/Resolved]
  - Leukopenia [Recovering/Resolving]
  - Cytopenia [Recovering/Resolving]
  - Anaemia [Recovering/Resolving]
  - Ascites [Recovering/Resolving]
  - Neutropenia [Recovering/Resolving]
